FAERS Safety Report 8094199-6 (Version None)
Quarter: 2012Q1

REPORT INFORMATION
  Report Type: 
  Country: None (occurrence: None)
  Receive Date: 20120130
  Receipt Date: 20120130
  Transmission Date: 20120608
  Serious: Yes (Disabling, Other)
  Sender: FDA-Public Use
  Company Number: None

PATIENT
  Age: 62 Year
  Sex: Female
  Weight: 52.163 kg

DRUGS (1)
  1. GLUCOPHAGE [Suspect]
     Indication: TYPE 2 DIABETES MELLITUS
     Dosage: ONE TABLET
     Route: 048
     Dates: start: 20111107, end: 20120118

REACTIONS (11)
  - SYNCOPE [None]
  - TREMOR [None]
  - DECREASED APPETITE [None]
  - CONFUSIONAL STATE [None]
  - ANXIETY [None]
  - INFLUENZA [None]
  - LACERATION [None]
  - DIZZINESS [None]
  - MIGRAINE [None]
  - FALL [None]
  - MENOPAUSE [None]
